FAERS Safety Report 12380520 (Version 7)
Quarter: 2017Q1

REPORT INFORMATION
  Report Type: Report from Study
  Country: BR (occurrence: BR)
  Receive Date: 20160518
  Receipt Date: 20170117
  Transmission Date: 20170428
  Serious: Yes (Hospitalization, Other)
  Sender: FDA-Public Use
  Company Number: PHHY2016BR044230

PATIENT
  Sex: Female
  Weight: 79 kg

DRUGS (7)
  1. EXJADE [Suspect]
     Active Substance: DEFERASIROX
     Indication: SICKLE CELL ANAEMIA
     Dosage: 15 MG/KG, QD (750 MG: 3 DF OF 250 MG)
     Route: 048
     Dates: start: 20160329
  2. EXJADE [Suspect]
     Active Substance: DEFERASIROX
     Dosage: 15 MG/KG, QD (1000 MG: 2 TABLETS OF 500 MG)
     Route: 048
  3. EXJADE [Suspect]
     Active Substance: DEFERASIROX
     Dosage: 750 MG, UNK
     Route: 048
  4. POLARAMINE [Concomitant]
     Active Substance: DEXCHLORPHENIRAMINE MALEATE
     Indication: PRODUCT USED FOR UNKNOWN INDICATION
     Route: 065
  5. EXJADE [Suspect]
     Active Substance: DEFERASIROX
     Dosage: 1250 MG, QD (2 TABLETS OF 500 MG AND 1 TABLET OF 250 MG ONCE A DAY)
     Route: 048
  6. FOLIC ACID. [Concomitant]
     Active Substance: FOLIC ACID
     Indication: SICKLE CELL ANAEMIA
     Dosage: 5 MG, QD
     Route: 048
  7. EXJADE [Suspect]
     Active Substance: DEFERASIROX
     Dosage: 20 MG/KG, QD (1250 MG: 2 TABLET OF 500 MG AND 1 TABLET 0F 250 MG))
     Route: 048

REACTIONS (36)
  - Weight decreased [Unknown]
  - Serum ferritin increased [Unknown]
  - Thrombosis [Unknown]
  - Neck pain [Unknown]
  - Abdominal pain [Unknown]
  - Pain [Unknown]
  - Restlessness [Unknown]
  - Inadequate diet [Unknown]
  - Limb injury [Unknown]
  - Urine odour abnormal [Recovering/Resolving]
  - Dizziness [Unknown]
  - Cholecystitis [Unknown]
  - Thirst [Unknown]
  - Eating disorder [Unknown]
  - Pyrexia [Unknown]
  - Sickle cell anaemia with crisis [Unknown]
  - Influenza [Not Recovered/Not Resolved]
  - Product quality issue [Unknown]
  - Dyspnoea [Unknown]
  - Lethargy [Unknown]
  - Cough [Unknown]
  - Psychiatric symptom [Unknown]
  - Asthenia [Unknown]
  - Nausea [Unknown]
  - Syncope [Unknown]
  - Malaise [Unknown]
  - Vision blurred [Unknown]
  - Retching [Unknown]
  - Urinary tract infection [Recovering/Resolving]
  - Dysphonia [Unknown]
  - Decreased immune responsiveness [Unknown]
  - Weight increased [Unknown]
  - Dysstasia [Unknown]
  - Blister [Recovered/Resolved]
  - Vomiting [Unknown]
  - Underdose [Unknown]
